FAERS Safety Report 16629974 (Version 1)
Quarter: 2019Q3

REPORT INFORMATION
  Report Type: Spontaneous
  Country: DE (occurrence: US)
  Receive Date: 20190725
  Receipt Date: 20190725
  Transmission Date: 20191004
  Serious: Yes (Hospitalization, Other)
  Sender: FDA-Public Use
  Company Number: DE-BAYER-2019-104016

PATIENT
  Sex: Female

DRUGS (2)
  1. ACETYLSALICYLIC ACID (PAIN AND FEVER) [Suspect]
     Active Substance: ASPIRIN
     Dosage: 5 G
     Route: 064
  2. PARACETAMOL [Suspect]
     Active Substance: ACETAMINOPHEN
     Dosage: 50 G
     Route: 064

REACTIONS (10)
  - Metabolic acidosis [Recovered/Resolved]
  - Foetal acidosis [Recovered/Resolved]
  - Premature baby [Unknown]
  - Foetal exposure during pregnancy [Unknown]
  - Foetal heart rate deceleration abnormality [Unknown]
  - Tachycardia foetal [Unknown]
  - Drug-induced liver injury [Recovered/Resolved]
  - Respiratory distress [Unknown]
  - Analgesic drug level increased [Unknown]
  - Transaminases increased [Recovered/Resolved]
